FAERS Safety Report 24956027 (Version 3)
Quarter: 2025Q1

REPORT INFORMATION
  Report Type: Spontaneous
  Country: AR (occurrence: AR)
  Receive Date: 20250211
  Receipt Date: 20250220
  Transmission Date: 20250408
  Serious: Yes (Disabling, Other)
  Sender: NOVARTIS
  Company Number: AR-002147023-NVSC2025AR017728

PATIENT
  Sex: Male

DRUGS (3)
  1. SANDOSTATIN LAR DEPOT [Suspect]
     Active Substance: OCTREOTIDE ACETATE
     Indication: Small intestine neuroendocrine tumour
     Route: 030
     Dates: start: 2013
  2. SANDOSTATIN LAR DEPOT [Suspect]
     Active Substance: OCTREOTIDE ACETATE
     Route: 030
     Dates: end: 20250117
  3. SANDOSTATIN LAR DEPOT [Suspect]
     Active Substance: OCTREOTIDE ACETATE

REACTIONS (14)
  - Mental disability [Unknown]
  - Metastases to liver [Unknown]
  - Disease recurrence [Unknown]
  - Small intestine neuroendocrine tumour [Unknown]
  - Diarrhoea [Unknown]
  - Hot flush [Unknown]
  - Malaise [Not Recovered/Not Resolved]
  - Discomfort [Unknown]
  - Listless [Unknown]
  - Ill-defined disorder [Unknown]
  - Investigation abnormal [Unknown]
  - Product storage error [Unknown]
  - Drug ineffective [Unknown]
  - Off label use [Unknown]

NARRATIVE: CASE EVENT DATE: 20240601
